FAERS Safety Report 22656385 (Version 1)
Quarter: 2023Q2

REPORT INFORMATION
  Report Type: Report from Study
  Country: BR (occurrence: BR)
  Receive Date: 20230629
  Receipt Date: 20230629
  Transmission Date: 20230722
  Serious: Yes (Hospitalization)
  Sender: FDA-Public Use
  Company Number: BR-CELLTRION INC.-2023BR013018

PATIENT

DRUGS (2)
  1. INFLIXIMAB [Suspect]
     Active Substance: INFLIXIMAB
     Indication: Crohn^s disease
     Dosage: 9 AMPOULES EVERY 8 WEEKS
     Route: 042
     Dates: start: 20220825
  2. ZANTAC [Concomitant]
     Active Substance: RANITIDINE HYDROCHLORIDE
     Indication: Crohn^s disease
     Dosage: 50MG 4 PILLS A DAY
     Route: 048

REACTIONS (4)
  - Pain [Recovering/Resolving]
  - Abdominal pain [Recovering/Resolving]
  - Bacterial infection [Recovering/Resolving]
  - Intentional product use issue [Unknown]
